FAERS Safety Report 7027334-9 (Version None)
Quarter: 2010Q4

REPORT INFORMATION
  Report Type: 
  Country: None (occurrence: None)
  Receive Date: 20101004
  Receipt Date: 20100921
  Transmission Date: 20110411
  Serious: Yes (Other)
  Sender: FDA-Public Use
  Company Number: PHHY2010RO62420

PATIENT
  Sex: Female

DRUGS (1)
  1. CGS 20267 T30748+FCTAB [Suspect]
     Indication: ANTIOESTROGEN THERAPY
     Dosage: 2.5 MG, UNK

REACTIONS (1)
  - THYROID NEOPLASM [None]
